FAERS Safety Report 8366694-3 (Version None)
Quarter: 2012Q2

REPORT INFORMATION
  Report Type: 
  Country: None (occurrence: None)
  Receive Date: 20120517
  Receipt Date: 20120511
  Transmission Date: 20120825
  Serious: Yes (Death, Other)
  Sender: FDA-Public Use
  Company Number: US-PFIZER INC-2012039609

PATIENT
  Sex: Male

DRUGS (7)
  1. MULTI-VITAMINS [Concomitant]
     Indication: MEDICAL DIET
     Dosage: UNK
     Dates: start: 20080801, end: 20090501
  2. CHANTIX [Suspect]
     Indication: SMOKING CESSATION THERAPY
     Dosage: STARTER PACK 0.5MG THEN 1MG DAILY
     Dates: start: 20071101, end: 20071201
  3. SKELAXIN [Concomitant]
     Indication: HYPERSENSITIVITY
     Dosage: UNK
     Dates: start: 20090501, end: 20090501
  4. CHONDROITIN/GLUCOSAMINE [Concomitant]
     Dosage: UNK
     Dates: start: 20080801, end: 20090501
  5. OMEGA [Concomitant]
     Indication: MEDICAL DIET
     Dosage: UNK
     Dates: start: 20080801, end: 20090501
  6. HYDROCODONE BITARTRATE + ACETAMINOPHEN [Concomitant]
     Indication: BACK PAIN
     Dosage: UNK
     Dates: start: 20090501, end: 20090501
  7. XYZAL [Concomitant]
     Indication: HYPERSENSITIVITY
     Dosage: UNK
     Dates: start: 20090501, end: 20090501

REACTIONS (4)
  - AGGRESSION [None]
  - PARANOIA [None]
  - COMPLETED SUICIDE [None]
  - DEPRESSION [None]
